FAERS Safety Report 9841725 (Version 1)
Quarter: 2014Q1

REPORT INFORMATION
  Report Type: Spontaneous
  Country: US (occurrence: US)
  Receive Date: 20140124
  Receipt Date: 20140124
  Transmission Date: 20141002
  Serious: Yes (Other)
  Sender: FDA-Public Use
  Company Number: US-GILEAD-2014-0092751

PATIENT
  Sex: Female

DRUGS (1)
  1. LETAIRIS [Suspect]
     Indication: PRODUCT USED FOR UNKNOWN INDICATION
     Dosage: 5 MG, UNK
     Route: 065

REACTIONS (8)
  - Pulmonary fibrosis [Unknown]
  - Oxygen saturation decreased [Unknown]
  - Sensitivity of teeth [Unknown]
  - Weight increased [Unknown]
  - Bedridden [Unknown]
  - Lung disorder [Unknown]
  - Liver function test abnormal [Recovered/Resolved]
  - Swelling face [Unknown]
